FAERS Safety Report 8287281-1 (Version None)
Quarter: 2012Q2

REPORT INFORMATION
  Report Type: 
  Country: None (occurrence: None)
  Receive Date: 20120416
  Receipt Date: 20120416
  Transmission Date: 20120825
  Serious: Yes (Life-Threatening, Disabling, Other)
  Sender: FDA-Public Use
  Company Number: None

PATIENT
  Age: 76 Year
  Sex: Male
  Weight: 79.378 kg

DRUGS (1)
  1. MERCAPTOPURINE [Suspect]
     Indication: COLITIS ULCERATIVE
     Dosage: 50.0 MG
     Route: 048
     Dates: start: 20090729, end: 20091016

REACTIONS (5)
  - ASTHENIA [None]
  - HEADACHE [None]
  - PYREXIA [None]
  - ACTIVITIES OF DAILY LIVING IMPAIRED [None]
  - RENAL FAILURE [None]
